FAERS Safety Report 6619205-4 (Version None)
Quarter: 2010Q1

REPORT INFORMATION
  Report Type: 
  Country: None (occurrence: None)
  Receive Date: 20100301
  Receipt Date: 20100217
  Transmission Date: 20100710
  Serious: Yes (Hospitalization)
  Sender: FDA-Public Use
  Company Number: 231661J10USA

PATIENT
  Age: 37 Year
  Sex: Female

DRUGS (2)
  1. REBIF [Suspect]
     Indication: MULTIPLE SCLEROSIS
     Dosage: 44 MCG, 3 IN 1 WEEKS, SUBCUTANEOUS
     Route: 058
     Dates: start: 20091109, end: 20100101
  2. KEPPRA [Concomitant]

REACTIONS (3)
  - BRAIN OEDEMA [None]
  - REFUSAL OF TREATMENT BY PATIENT [None]
  - ROAD TRAFFIC ACCIDENT [None]
